FAERS Safety Report 12206301 (Version 1)
Quarter: 2016Q1

REPORT INFORMATION
  Report Type: Spontaneous
  Country: US (occurrence: US)
  Receive Date: 20160324
  Receipt Date: 20160324
  Transmission Date: 20160526
  Serious: No
  Sender: FDA-Public Use
  Company Number: US-AUROBINDO-AUR-APL-2015-11010

PATIENT
  Age: 52 Year
  Sex: Female
  Weight: 90.7 kg

DRUGS (1)
  1. SERTRALINE HYDROCHLORIDE TABLETS 100MG [Suspect]
     Active Substance: SERTRALINE HYDROCHLORIDE
     Indication: DEPRESSION
     Dosage: 100 MG, TWO TIMES A DAY
     Route: 048
     Dates: end: 20151024

REACTIONS (5)
  - Motion sickness [Not Recovered/Not Resolved]
  - Anxiety [Not Recovered/Not Resolved]
  - Drug withdrawal syndrome [Not Recovered/Not Resolved]
  - Dizziness [Not Recovered/Not Resolved]
  - Feeling drunk [Not Recovered/Not Resolved]

NARRATIVE: CASE EVENT DATE: 20151024
